FAERS Safety Report 18480038 (Version 1)
Quarter: 2020Q4

REPORT INFORMATION
  Report Type: Spontaneous
  Country: US (occurrence: US)
  Receive Date: 20201108
  Receipt Date: 20201108
  Transmission Date: 20210114
  Serious: Yes (Hospitalization)
  Sender: FDA-Public Use
  Company Number: None

PATIENT
  Age: 47 Year
  Sex: Male
  Weight: 87.3 kg

DRUGS (4)
  1. CEFEPIME [Suspect]
     Active Substance: CEFEPIME HYDROCHLORIDE
     Indication: FEBRILE NEUTROPENIA
     Dosage: ?          OTHER FREQUENCY:Q8H;?
     Route: 042
     Dates: start: 20201018, end: 20201020
  2. ALLOPURINOL 200MG [Concomitant]
     Active Substance: ALLOPURINOL
  3. ACYCLOVIR 400MG [Concomitant]
     Active Substance: ACYCLOVIR
  4. OXYCODONE 10MG [Concomitant]
     Active Substance: OXYCODONE

REACTIONS (5)
  - Pyrexia [None]
  - Acute generalised exanthematous pustulosis [None]
  - Pruritus [None]
  - Dermatitis contact [None]
  - Rash [None]

NARRATIVE: CASE EVENT DATE: 20201021
